FAERS Safety Report 7426206-5 (Version None)
Quarter: 2011Q2

REPORT INFORMATION
  Report Type: 
  Country: None (occurrence: None)
  Receive Date: 20110420
  Receipt Date: 20110412
  Transmission Date: 20111010
  Serious: Yes (Hospitalization)
  Sender: FDA-Public Use
  Company Number: Z0008614B

PATIENT
  Age: 52 Year
  Sex: Male
  Weight: 98.8 kg

DRUGS (4)
  1. CISPLATIN [Suspect]
     Indication: LYMPHOMA
     Dosage: 100MGM2 PER DAY
     Dates: start: 20110217
  2. OFATUMUMAB [Suspect]
     Indication: LYMPHOMA
     Route: 042
     Dates: start: 20110217
  3. CYTARABINE [Suspect]
     Indication: LYMPHOMA
     Route: 042
     Dates: start: 20110218
  4. DEXAMETHASONE [Suspect]
     Indication: LYMPHOMA
     Route: 042
     Dates: start: 20110217

REACTIONS (1)
  - FEBRILE NEUTROPENIA [None]
